FAERS Safety Report 7095316-7 (Version None)
Quarter: 2010Q4

REPORT INFORMATION
  Report Type: 
  Country: None (occurrence: None)
  Receive Date: 20101018
  Receipt Date: 20100122
  Transmission Date: 20110411
  Serious: Yes (Other)
  Sender: FDA-Public Use
  Company Number: HQWYE755222JUN07

PATIENT
  Age: 49 Year
  Sex: Female
  Weight: 90.8 kg

DRUGS (7)
  1. PREMARIN [Suspect]
     Indication: HORMONE REPLACEMENT THERAPY
  2. ESTINYL [Suspect]
  3. ESTRACE [Suspect]
  4. ESTRADIOL [Suspect]
  5. EVISTA [Suspect]
  6. PREMARIN [Suspect]
  7. VAGIFEM [Suspect]

REACTIONS (1)
  - BREAST CANCER [None]
